FAERS Safety Report 6414316-0 (Version None)
Quarter: 2009Q4

REPORT INFORMATION
  Report Type: 
  Country: None (occurrence: None)
  Receive Date: 20091026
  Receipt Date: 20091015
  Transmission Date: 20100525
  Serious: Yes (Hospitalization)
  Sender: FDA-Public Use
  Company Number: IT-JNJCH-2009027699

PATIENT
  Sex: Male

DRUGS (1)
  1. CETIRIZINE HYDROCHLORIDE [Suspect]
     Indication: ERYTHEMA
     Dosage: TEXT:10 MG
     Route: 048
     Dates: start: 20090814, end: 20090814

REACTIONS (1)
  - ISCHAEMIC STROKE [None]
